FAERS Safety Report 5423700-3 (Version None)
Quarter: 2007Q3

REPORT INFORMATION
  Report Type: 
  Country: None (occurrence: None)
  Receive Date: 20070725
  Receipt Date: 20070223
  Transmission Date: 20080115
  Serious: Yes (Other)
  Sender: FDA-Public Use
  Company Number: USA030947103

PATIENT
  Age: 8 Year
  Sex: Male
  Weight: 63.5 kg

DRUGS (6)
  1. STRATTERA [Suspect]
     Indication: ATTENTION DEFICIT/HYPERACTIVITY DISORDER
     Dosage: 40 MG, DAILY (1/D), ORAL; 60 MG, DAILY (1/D), ORAL; 18 MG, EACH MORNING, ORAL; 25 MG, DAILY (1/D),
     Route: 048
     Dates: start: 20030501, end: 20030801
  2. STRATTERA [Suspect]
     Indication: ATTENTION DEFICIT/HYPERACTIVITY DISORDER
     Dosage: 40 MG, DAILY (1/D), ORAL; 60 MG, DAILY (1/D), ORAL; 18 MG, EACH MORNING, ORAL; 25 MG, DAILY (1/D),
     Route: 048
     Dates: start: 20030801
  3. ALLEGRA [Concomitant]
  4. RHINOCORT [Concomitant]
  5. SINGULAR (MONTELUKAST SODIUM) [Concomitant]
  6. RITALIN [Concomitant]

REACTIONS (6)
  - DRUG EFFECT DECREASED [None]
  - HALLUCINATION, AUDITORY [None]
  - INSOMNIA [None]
  - IRRITABILITY [None]
  - OVERDOSE [None]
  - UNEVALUABLE EVENT [None]
